FAERS Safety Report 8119583-3 (Version None)
Quarter: 2012Q1

REPORT INFORMATION
  Report Type: 
  Country: None (occurrence: None)
  Receive Date: 20120207
  Receipt Date: 20120131
  Transmission Date: 20120608
  Serious: Yes (Hospitalization, Other)
  Sender: FDA-Public Use
  Company Number: PHHY2012PE002239

PATIENT
  Age: 92 Year
  Sex: Male

DRUGS (2)
  1. RANITIDINE [Concomitant]
  2. EXELON [Suspect]
     Indication: DEMENTIA ALZHEIMER'S TYPE
     Dosage: 4.6 MG\24H
     Route: 062
     Dates: start: 20111113

REACTIONS (5)
  - HYPOKINESIA [None]
  - CONVULSION [None]
  - INFARCTION [None]
  - TRANSIENT ISCHAEMIC ATTACK [None]
  - MEDICAL DEVICE COMPLICATION [None]
